FAERS Safety Report 8286440-1 (Version None)
Quarter: 2012Q2

REPORT INFORMATION
  Report Type: 
  Country: None (occurrence: None)
  Receive Date: 20120416
  Receipt Date: 20120410
  Transmission Date: 20120825
  Serious: Yes (Other)
  Sender: FDA-Public Use
  Company Number: US-PFIZER INC-2012046206

PATIENT
  Sex: Female
  Weight: 64.399 kg

DRUGS (3)
  1. PREMARIN [Suspect]
     Dosage: UNK, 1X/DAY
     Route: 067
  2. PREMARIN [Suspect]
     Indication: VAGINAL ULCERATION
     Dosage: 0.5 MG, 1X/DAY
     Route: 067
  3. PREMARIN [Suspect]
     Indication: VULVOVAGINAL DRYNESS
     Dosage: UNK, 1X/DAY
     Route: 067

REACTIONS (5)
  - VAGINAL ULCERATION [None]
  - BLOOD GLUCOSE INCREASED [None]
  - BLOOD CHOLESTEROL INCREASED [None]
  - BLOOD TRIGLYCERIDES INCREASED [None]
  - EXPIRED DRUG ADMINISTERED [None]
